FAERS Safety Report 8208504-0 (Version None)
Quarter: 2012Q1

REPORT INFORMATION
  Report Type: 
  Country: None (occurrence: None)
  Receive Date: 20120314
  Receipt Date: 20120306
  Transmission Date: 20120608
  Serious: Yes (Other)
  Sender: FDA-Public Use
  Company Number: US-VERTEX PHARMACEUTICALS INC.-AE-2012-002207

PATIENT
  Sex: Female
  Weight: 57.658 kg

DRUGS (4)
  1. RIBAVIRIN [Concomitant]
     Route: 048
     Dates: end: 20120206
  2. INCIVEK [Suspect]
     Indication: HEPATITIS C
     Route: 048
     Dates: start: 20111230, end: 20120206
  3. RIBAVIRIN [Concomitant]
     Indication: HEPATITIS C
     Route: 048
     Dates: start: 20111230
  4. PEGASYS [Concomitant]
     Indication: HEPATITIS C
     Route: 058
     Dates: start: 20111230, end: 20120206

REACTIONS (3)
  - PANCYTOPENIA [None]
  - ANAPHYLACTIC REACTION [None]
  - RASH GENERALISED [None]
